FAERS Safety Report 21962096 (Version 1)
Quarter: 2023Q1

REPORT INFORMATION
  Report Type: Report from Study
  Country: US (occurrence: US)
  Receive Date: 20230207
  Receipt Date: 20230207
  Transmission Date: 20230418
  Serious: Yes (Hospitalization)
  Sender: FDA-Public Use
  Company Number: US-ORG100014127-2022000289

PATIENT
  Age: 67 Year
  Sex: Male

DRUGS (7)
  1. METOPIRONE [Suspect]
     Active Substance: METYRAPONE
     Indication: Cushing^s syndrome
     Dosage: 1 CAPSULE FOUR TIMES DAILY
     Route: 048
     Dates: start: 20220211
  2. METOPIRONE [Suspect]
     Active Substance: METYRAPONE
     Indication: Cushing^s syndrome
     Dosage: 3 CAPSULES 4 TIMES A DAY AND 4 CAPSULES 4 TIMES A DAY
     Route: 048
     Dates: start: 2022
  3. METOPIRONE [Suspect]
     Active Substance: METYRAPONE
     Indication: Cushing^s syndrome
     Dosage: 05 CAPSULES 04 TIMES A DAY
     Route: 048
     Dates: start: 2022
  4. LYSODREN [Suspect]
     Active Substance: MITOTANE
     Indication: Adrenal gland cancer
     Dosage: TAKE 3 TABLETS BY MOUTH TWO TIMES A DAY WITH MEALS
     Route: 048
     Dates: start: 20221122
  5. KETOCONAZOLE TAB 200MG [Concomitant]
     Indication: Product used for unknown indication
  6. ROSUVASTATIN [Concomitant]
     Active Substance: ROSUVASTATIN
     Indication: Product used for unknown indication
  7. KEYTRUDA Inj 100 mg/4M [Concomitant]
     Indication: Product used for unknown indication

REACTIONS (2)
  - Cortisol decreased [Recovering/Resolving]
  - Off label use [Not Recovered/Not Resolved]

NARRATIVE: CASE EVENT DATE: 20220211
